FAERS Safety Report 13825172 (Version 8)
Quarter: 2018Q3

REPORT INFORMATION
  Report Type: Spontaneous
  Country: ZA (occurrence: ZA)
  Receive Date: 20170802
  Receipt Date: 20180705
  Transmission Date: 20181010
  Serious: Yes (Life-Threatening, Hospitalization)
  Sender: FDA-Public Use
  Company Number: PHHY2017ZA112378

PATIENT
  Age: 50 Year
  Sex: Female

DRUGS (5)
  1. ZOLADEX [Concomitant]
     Active Substance: GOSERELIN ACETATE
     Indication: BREAST CANCER
     Dosage: UNK
     Route: 065
  2. VITAMIN D [Concomitant]
     Active Substance: CHOLECALCIFEROL
     Indication: PRODUCT USED FOR UNKNOWN INDICATION
     Route: 065
  3. ERYTHROMYCIN. [Concomitant]
     Active Substance: ERYTHROMYCIN
     Indication: INFECTION
     Route: 065
  4. ACLASTA [Suspect]
     Active Substance: ZOLEDRONIC ACID
     Indication: OSTEOPOROSIS
     Dosage: UNK
     Route: 041
     Dates: start: 201707
  5. CALCIUM [Concomitant]
     Active Substance: CALCIUM
     Indication: PRODUCT USED FOR UNKNOWN INDICATION
     Route: 065

REACTIONS (34)
  - Dry eye [Not Recovered/Not Resolved]
  - Nerve injury [Unknown]
  - Conjunctivitis [Unknown]
  - Constipation [Not Recovered/Not Resolved]
  - Hypoaesthesia [Not Recovered/Not Resolved]
  - Dizziness [Not Recovered/Not Resolved]
  - Chills [Recovered/Resolved]
  - Vulvovaginal swelling [Not Recovered/Not Resolved]
  - Aptyalism [Recovering/Resolving]
  - Body temperature increased [Recovered/Resolved]
  - Decreased appetite [Recovering/Resolving]
  - Mouth ulceration [Unknown]
  - Influenza like illness [Recovered/Resolved]
  - Dry mouth [Unknown]
  - Weight decreased [Recovering/Resolving]
  - Head discomfort [Not Recovered/Not Resolved]
  - Ear disorder [Unknown]
  - Gastrooesophageal reflux disease [Unknown]
  - Arthralgia [Not Recovered/Not Resolved]
  - Skin disorder [Unknown]
  - Metamorphopsia [Unknown]
  - Alopecia [Recovering/Resolving]
  - Headache [Not Recovered/Not Resolved]
  - Insomnia [Unknown]
  - Feeling abnormal [Recovered/Resolved]
  - Ear discomfort [Not Recovered/Not Resolved]
  - Blepharospasm [Unknown]
  - Paraesthesia [Unknown]
  - Myalgia [Not Recovered/Not Resolved]
  - Lacrimation decreased [Not Recovered/Not Resolved]
  - Calcium deficiency [Unknown]
  - Fear [Unknown]
  - Vision blurred [Not Recovered/Not Resolved]
  - Malaise [Not Recovered/Not Resolved]
